FAERS Safety Report 21204568 (Version 1)
Quarter: 2022Q3

REPORT INFORMATION
  Report Type: Report from Study
  Country: CA (occurrence: CA)
  Receive Date: 20220812
  Receipt Date: 20220812
  Transmission Date: 20221026
  Serious: Yes (Other)
  Sender: FDA-Public Use
  Company Number: CA-TEVA-2022-CA-2062357

PATIENT
  Sex: Female

DRUGS (3)
  1. OCTREOTIDE [Suspect]
     Active Substance: OCTREOTIDE
     Indication: Carcinoid tumour
     Route: 030
     Dates: start: 20220303
  2. OCTREOTIDE [Suspect]
     Active Substance: OCTREOTIDE
     Route: 030
  3. SandoLAR [Concomitant]
     Indication: Product used for unknown indication

REACTIONS (1)
  - Hepatic neoplasm [Unknown]
